FAERS Safety Report 5403555-3 (Version None)
Quarter: 2007Q3

REPORT INFORMATION
  Report Type: 
  Country: None (occurrence: None)
  Receive Date: 20070730
  Receipt Date: 20070719
  Transmission Date: 20080115
  Serious: Yes (Other)
  Sender: FDA-Public Use
  Company Number: GXKR2007GB06249

PATIENT
  Age: 47 Year
  Sex: Female

DRUGS (1)
  1. CLOMIPRAMINE (NGX) (CLOMIPRAMINE) UNKNOWN [Suspect]

REACTIONS (2)
  - DRUG ABUSER [None]
  - MOOD ALTERED [None]
